FAERS Safety Report 18746451 (Version 1)
Quarter: 2021Q1

REPORT INFORMATION
  Report Type: Report from Study
  Country: ES (occurrence: ES)
  Receive Date: 20210115
  Receipt Date: 20210115
  Transmission Date: 20210419
  Serious: Yes (Other)
  Sender: FDA-Public Use
  Company Number: ES-TEVA-2021-ES-1869676

PATIENT
  Age: 49 Year
  Sex: Male

DRUGS (7)
  1. AZITROMICINA (7019A) [Suspect]
     Active Substance: AZITHROMYCIN
     Dates: start: 20200324
  2. LOPINAVIR + RITONAVIR [Suspect]
     Active Substance: LOPINAVIR\RITONAVIR
     Indication: COVID-19
     Dosage: 400/100 EVERY 12 HOURS:UNIT DOSE:1DOSAGEFORM
     Route: 048
     Dates: start: 20200324, end: 20200326
  3. HIDROXICLOROQUINA (2143A) [Concomitant]
     Active Substance: HYDROXYCHLOROQUINE
     Indication: COVID-19
     Dosage: 400 MG / 12 HOURS THE FIRST DAY AND THE REST 200 MG / 12 HOURS
     Route: 048
     Dates: start: 20200324, end: 20200330
  4. CEFTRIAXONA (501A) [Concomitant]
     Active Substance: CEFTRIAXONE
  5. PIPERACILINA + TAZOBACTAM [Concomitant]
     Active Substance: PIPERACILLIN SODIUM\TAZOBACTAM SODIUM
  6. MEROPENEM (7155A) [Concomitant]
     Active Substance: MEROPENEM
  7. METILPREDNISOLONA (888A) [Concomitant]
     Active Substance: METHYLPREDNISOLONE
     Dosage: 400MILLIGRAM
     Route: 048
     Dates: start: 20200330, end: 20200402

REACTIONS (2)
  - Cholestasis [Recovered/Resolved]
  - Diarrhoea [Recovered/Resolved]

NARRATIVE: CASE EVENT DATE: 202003
